FAERS Safety Report 7389341-6 (Version None)
Quarter: 2011Q2

REPORT INFORMATION
  Report Type: 
  Country: None (occurrence: None)
  Receive Date: 20110401
  Receipt Date: 20110325
  Transmission Date: 20111010
  Serious: Yes (Hospitalization)
  Sender: FDA-Public Use
  Company Number: A0920765A

PATIENT
  Age: 62 Year
  Sex: Male
  Weight: 84.6 kg

DRUGS (16)
  1. METOPROLOL [Concomitant]
  2. SENNOSIDES [Concomitant]
  3. EVEROLIMUS [Suspect]
     Indication: BLADDER CANCER
     Dosage: 5MG PER DAY
     Dates: start: 20110113
  4. SIMVASTATIN [Concomitant]
  5. DALTEPARIN SODIUM [Concomitant]
  6. GABAPENTIN [Concomitant]
  7. MAGNESIUM OXIDE [Concomitant]
  8. NEUTRAPHOS [Concomitant]
  9. OXYCONTIN [Concomitant]
  10. FLUOXETINE HYDROCHLORIDE [Concomitant]
  11. METFORMIN HCL [Concomitant]
  12. TAMSULOSIN [Concomitant]
  13. PAZOPANIB [Suspect]
     Indication: BLADDER CANCER
     Dosage: 600MG PER DAY
     Route: 048
     Dates: start: 20110113
  14. DOCUSATE SODIUM [Concomitant]
  15. OXYCODONE [Concomitant]
  16. ALEVE [Concomitant]

REACTIONS (1)
  - PNEUMONIA [None]
